FAERS Safety Report 7898527-3 (Version None)
Quarter: 2011Q4

REPORT INFORMATION
  Report Type: 
  Country: None (occurrence: None)
  Receive Date: 20111107
  Receipt Date: 20111026
  Transmission Date: 20120403
  Serious: Yes (Death)
  Sender: FDA-Public Use
  Company Number: JP-SANOFI-AVENTIS-2011SA071277

PATIENT
  Age: 57 Year
  Sex: Female
  Weight: 42 kg

DRUGS (8)
  1. ALENDRONATE SODIUM [Concomitant]
     Indication: OSTEOPOROSIS
     Route: 048
     Dates: start: 20090208, end: 20111021
  2. LOXONIN [Concomitant]
     Indication: RHEUMATOID ARTHRITIS
     Route: 048
     Dates: end: 20111021
  3. AMLODIPINE BESYLATE [Concomitant]
     Indication: HYPERTENSION
     Route: 048
     Dates: start: 20040312, end: 20111021
  4. PREDNISOLONE [Suspect]
     Indication: RHEUMATOID ARTHRITIS
     Dosage: 4-0-3
     Route: 048
  5. RABEPRAZOLE SODIUM [Concomitant]
     Route: 048
     Dates: start: 20040507, end: 20111021
  6. EVISTA [Concomitant]
     Indication: OSTEOPOROSIS
     Route: 048
     Dates: start: 20080530, end: 20111021
  7. ARAVA [Suspect]
     Indication: RHEUMATOID ARTHRITIS
     Route: 048
     Dates: start: 20110513, end: 20111021
  8. BARACLUDE [Concomitant]
     Route: 048
     Dates: start: 20101126, end: 20111021

REACTIONS (1)
  - PANCREATITIS ACUTE [None]
